FAERS Safety Report 19432113 (Version 1)
Quarter: 2021Q2

REPORT INFORMATION
  Report Type: Spontaneous
  Country: US (occurrence: US)
  Receive Date: 20210617
  Receipt Date: 20210617
  Transmission Date: 20210717
  Serious: Yes (Life-Threatening, Hospitalization)
  Sender: FDA-Public Use
  Company Number: US-TEVA-2021-US-1922487

PATIENT
  Age: 5 Month
  Sex: Female
  Weight: 7.92 kg

DRUGS (3)
  1. LEVETIRACETAM. [Suspect]
     Active Substance: LEVETIRACETAM
     Indication: STATUS EPILEPTICUS
     Route: 065
  2. EMLA [Suspect]
     Active Substance: LIDOCAINE\PRILOCAINE
     Indication: APPLICATION SITE ANAESTHESIA
     Dosage: INFANT RECEIVED 15G OF 2.5% LIDOCAINE/PRILOCAINE 375MG OF EACH DRUG
     Route: 061
  3. LEVETIRACETAM. [Suspect]
     Active Substance: LEVETIRACETAM
     Indication: NEUROTOXICITY

REACTIONS (5)
  - Local anaesthetic systemic toxicity [Recovering/Resolving]
  - Status epilepticus [Recovering/Resolving]
  - Overdose [Unknown]
  - Neurotoxicity [Recovering/Resolving]
  - Drug ineffective [Unknown]
